FAERS Safety Report 5095509-4 (Version None)
Quarter: 2006Q3

REPORT INFORMATION
  Report Type: 
  Country: None (occurrence: None)
  Receive Date: 20060901
  Receipt Date: 20060901
  Transmission Date: 20061208
  Serious: Yes (Other)
  Sender: FDA-Public Use
  Company Number: None

PATIENT
  Age: 72 Year
  Sex: Male

DRUGS (1)
  1. TERBUTALINE SULFATE [Suspect]
     Dosage: 5 MG QD

REACTIONS (2)
  - NAUSEA [None]
  - PALPITATIONS [None]
